FAERS Safety Report 26053516 (Version 2)
Quarter: 2025Q4

REPORT INFORMATION
  Report Type: Spontaneous
  Country: US (occurrence: US)
  Receive Date: 20251117
  Receipt Date: 20251209
  Transmission Date: 20260119
  Serious: Yes (Death, Other)
  Sender: PFIZER
  Company Number: US-PFIZER INC-PV202500132886

PATIENT
  Age: 43 Year
  Sex: Male

DRUGS (10)
  1. METHYLPREDNISOLONE SODIUM SUCCINATE [Suspect]
     Active Substance: METHYLPREDNISOLONE SODIUM SUCCINATE
     Indication: Pneumonitis
     Dosage: 60 MG, 2X/DAY
  2. METHYLPREDNISOLONE SODIUM SUCCINATE [Suspect]
     Active Substance: METHYLPREDNISOLONE SODIUM SUCCINATE
     Indication: Acute respiratory distress syndrome
     Dosage: 250 MG, 2X/DAY
  3. METHYLPREDNISOLONE SODIUM SUCCINATE [Suspect]
     Active Substance: METHYLPREDNISOLONE SODIUM SUCCINATE
     Indication: Evidence based treatment
     Dosage: HIGH-DOSE
     Route: 042
  4. INFLIXIMAB [Suspect]
     Active Substance: INFLIXIMAB
     Indication: Pneumonitis
     Dosage: 5 MG/KG
  5. INFLIXIMAB [Suspect]
     Active Substance: INFLIXIMAB
     Indication: Acute respiratory distress syndrome
     Dosage: SECOND DOSE AT DAY 14
  6. PREDNISONE [Suspect]
     Active Substance: PREDNISONE
     Indication: Pneumonitis
     Dosage: 50 MG, 2X/DAY
  7. PREDNISONE [Suspect]
     Active Substance: PREDNISONE
     Indication: Acute respiratory distress syndrome
  8. PREDNISONE [Suspect]
     Active Substance: PREDNISONE
     Indication: Antibiotic therapy
  9. VANCOMYCIN [Concomitant]
     Active Substance: VANCOMYCIN
     Indication: Evidence based treatment
     Dosage: UNK
  10. PIPERACILLIN AND TAZOBACTAM [Concomitant]
     Active Substance: PIPERACILLIN SODIUM\TAZOBACTAM SODIUM
     Indication: Evidence based treatment
     Dosage: UNK

REACTIONS (5)
  - Pneumonia bacterial [Fatal]
  - Pneumonia fungal [Fatal]
  - Fungaemia [Fatal]
  - Drug ineffective for unapproved indication [Unknown]
  - Off label use [Unknown]
